FAERS Safety Report 15250552 (Version 1)
Quarter: 2018Q3

REPORT INFORMATION
  Report Type: Spontaneous
  Country: US (occurrence: US)
  Receive Date: 20180716
  Receipt Date: 20180716
  Transmission Date: 20181010
  Serious: Yes (Other)
  Sender: FDA-Public Use
  Company Number: None

PATIENT
  Age: 73 Year
  Sex: Female
  Weight: 83.7 kg

DRUGS (12)
  1. LEVOXYL [Concomitant]
     Active Substance: LEVOTHYROXINE SODIUM
  2. VITAMIN B COMPLEX [Concomitant]
     Active Substance: CYANOCOBALAMIN\DEXPANTHENOL\NIACINAMIDE\PYRIDOXINE HYDROCHLORIDE\RIBOFLAVIN 5^-PHOSPHATE SODIUM\THIAMINE HYDROCHLORIDE\VITAMIN B COMPLEX
  3. B2 [Concomitant]
  4. MAGNESIUM [Concomitant]
     Active Substance: MAGNESIUM
  5. E [Concomitant]
  6. BABY ASPIRING [Concomitant]
  7. OMEGA 3 [Concomitant]
     Active Substance: OMEGA-3 FATTY ACIDS
  8. CANDESARTAN CILEXETIL 16 MG TABLETS [Suspect]
     Active Substance: CANDESARTAN CILEXETIL
     Indication: MIGRAINE
     Dosage: ?          QUANTITY:1 TABLET(S);?
     Route: 048
     Dates: start: 20180504
  9. CANDESARTAN. [Concomitant]
     Active Substance: CANDESARTAN
  10. CALCIUM [Concomitant]
     Active Substance: CALCIUM
  11. BIOTIN [Concomitant]
     Active Substance: BIOTIN
  12. C [Concomitant]

REACTIONS (6)
  - Headache [None]
  - Diarrhoea [None]
  - Hot flush [None]
  - Insomnia [None]
  - Migraine [None]
  - Pain [None]
